FAERS Safety Report 8849598 (Version 4)
Quarter: 2013Q1

REPORT INFORMATION
  Report Type: Spontaneous
  Country: FI (occurrence: FI)
  Receive Date: 20121019
  Receipt Date: 20130325
  Transmission Date: 20140127
  Serious: Yes (Other)
  Sender: FDA-Public Use
  Company Number: FI-JNJFOC-20121006871

PATIENT
  Age: 84 Year
  Sex: Male

DRUGS (6)
  1. ZYTIGA [Suspect]
     Indication: PROSTATE CANCER
     Route: 048
  2. CORTISONE [Concomitant]
     Route: 065
  3. IBUPROFEN [Concomitant]
     Indication: HEADACHE
     Route: 065
  4. OXYCONTIN [Concomitant]
     Indication: BONE PAIN
     Route: 065
  5. TRAMAL [Concomitant]
     Indication: BONE PAIN
     Route: 065
  6. PARACETAMOL [Concomitant]
     Indication: HEADACHE
     Route: 065

REACTIONS (5)
  - Deafness [Unknown]
  - Syncope [Unknown]
  - Metastasis [Unknown]
  - Dizziness [Unknown]
  - Drug ineffective [Unknown]
